FAERS Safety Report 9421791 (Version 4)
Quarter: 2014Q1

REPORT INFORMATION
  Report Type: Spontaneous
  Country: FR (occurrence: FR)
  Receive Date: 20130726
  Receipt Date: 20140131
  Transmission Date: 20141002
  Serious: Yes (Other)
  Sender: FDA-Public Use
  Company Number: FR-AMGEN-FRASP2013052142

PATIENT
  Age: 50 Year
  Sex: Female

DRUGS (5)
  1. ENBREL [Suspect]
     Indication: PSORIASIS
     Dosage: 50 MG, WEEKLY
     Route: 058
     Dates: start: 201209, end: 20121203
  2. HUMIRA [Suspect]
     Indication: PSORIASIS
     Dosage: 40 MG EVERY 2 WEEKS
     Route: 058
     Dates: start: 20121203, end: 20130129
  3. SEROPLEX [Concomitant]
     Dosage: UNK
     Route: 048
  4. LAMALINE                           /00764901/ [Concomitant]
     Dosage: UNK
     Route: 048
  5. CODOLIPRANE [Concomitant]
     Dosage: UNK
     Route: 048

REACTIONS (1)
  - Hepatocellular injury [Recovering/Resolving]
